FAERS Safety Report 6739037-6 (Version None)
Quarter: 2010Q2

REPORT INFORMATION
  Report Type: 
  Country: None (occurrence: None)
  Receive Date: 20100524
  Receipt Date: 20100524
  Transmission Date: 20101027
  Serious: No
  Sender: FDA-Public Use
  Company Number: None

PATIENT
  Age: 66 Year
  Sex: Female
  Weight: 74.8435 kg

DRUGS (2)
  1. AMRIX [Suspect]
     Indication: BACK PAIN
     Dosage: 1 PILL ONCE PO
     Route: 048
     Dates: start: 20100519, end: 20100519
  2. AMRIX [Suspect]
     Indication: NECK PAIN
     Dosage: 1 PILL ONCE PO
     Route: 048
     Dates: start: 20100519, end: 20100519

REACTIONS (2)
  - CONFUSIONAL STATE [None]
  - MENTAL IMPAIRMENT [None]
